FAERS Safety Report 11681481 (Version 3)
Quarter: 2016Q1

REPORT INFORMATION
  Report Type: Report from Study
  Country: BR (occurrence: BR)
  Receive Date: 20151029
  Receipt Date: 20160202
  Transmission Date: 20160525
  Serious: Yes (Hospitalization, Disabling, Other)
  Sender: FDA-Public Use
  Company Number: BR-ROCHE-1650947

PATIENT
  Age: 66 Year
  Sex: Female
  Weight: 66 kg

DRUGS (6)
  1. AEROLIN [Concomitant]
     Active Substance: ALBUTEROL
  2. FOLIC ACID. [Concomitant]
     Active Substance: FOLIC ACID
     Dosage: AFTER LUNCH
     Route: 065
  3. PANTOPRAZOLE [Concomitant]
     Active Substance: PANTOPRAZOLE SODIUM
     Indication: GASTRIC DISORDER
     Dosage: IN THE MORNING
     Route: 065
  4. ROSUVASTATIN CALCIUM. [Concomitant]
     Active Substance: ROSUVASTATIN CALCIUM
     Indication: BLOOD CHOLESTEROL INCREASED
     Dosage: IN THE MORNING
     Route: 065
  5. METHOTREXATE [Concomitant]
     Active Substance: METHOTREXATE
     Indication: RHEUMATOID ARTHRITIS
     Route: 065
  6. MABTHERA [Suspect]
     Active Substance: RITUXIMAB
     Indication: RHEUMATOID ARTHRITIS
     Route: 042
     Dates: start: 20140502, end: 20140519

REACTIONS (15)
  - Cataract [Unknown]
  - Neoplasm [Unknown]
  - Deafness [Not Recovered/Not Resolved]
  - Retinal neoplasm [Unknown]
  - Pain [Recovering/Resolving]
  - Anaphylactic shock [Unknown]
  - Memory impairment [Unknown]
  - Blood pressure abnormal [Unknown]
  - Bronchitis [Unknown]
  - Weight decreased [Unknown]
  - Myocardial infarction [Unknown]
  - Maculopathy [Unknown]
  - Vocal cord cyst [Unknown]
  - Abasia [Recovering/Resolving]
  - Blindness [Unknown]

NARRATIVE: CASE EVENT DATE: 201412
